FAERS Safety Report 14747050 (Version 1)
Quarter: 2018Q2

REPORT INFORMATION
  Report Type: Spontaneous
  Country: US (occurrence: US)
  Receive Date: 20180411
  Receipt Date: 20180411
  Transmission Date: 20180711
  Serious: No
  Sender: FDA-Public Use
  Company Number: US-ENDO PHARMACEUTICALS INC-2018-019718

PATIENT
  Sex: Male

DRUGS (2)
  1. AVEED [Suspect]
     Active Substance: TESTOSTERONE UNDECANOATE
     Indication: PRIMARY HYPOGONADISM
     Dosage: 750 MG/3ML, LOADING DOSE
     Route: 065
     Dates: start: 201711
  2. AVEED [Suspect]
     Active Substance: TESTOSTERONE UNDECANOATE
     Dosage: 750 MG//3ML, INJECTION 4 WEEKS FROM LOADING DOSE
     Route: 065
     Dates: start: 201712, end: 201712

REACTIONS (1)
  - Drug ineffective [Unknown]
